FAERS Safety Report 22396798 (Version 1)
Quarter: 2023Q2

REPORT INFORMATION
  Report Type: Spontaneous
  Country: CN (occurrence: CN)
  Receive Date: 20230601
  Receipt Date: 20230601
  Transmission Date: 20230721
  Serious: Yes (Other)
  Sender: FDA-Public Use
  Company Number: CN-009507513-2305CHN009239

PATIENT
  Age: 56 Year
  Sex: Female

DRUGS (2)
  1. CILASTATIN SODIUM\IMIPENEM [Suspect]
     Active Substance: CILASTATIN SODIUM\IMIPENEM
     Indication: Infection
     Dosage: 0.5 GRAM, Q6H
     Route: 041
     Dates: start: 20230429, end: 20230507
  2. CILASTATIN SODIUM\IMIPENEM [Suspect]
     Active Substance: CILASTATIN SODIUM\IMIPENEM
     Dosage: 0.5 GRAM, Q8H
     Route: 041
     Dates: start: 20230507, end: 20230513

REACTIONS (14)
  - Mental disorder [Recovering/Resolving]
  - Persecutory delusion [Recovering/Resolving]
  - Wernicke^s encephalopathy [Unknown]
  - Hallucination [Unknown]
  - Hallucination, auditory [Unknown]
  - Post intensive care syndrome [Unknown]
  - Therapeutic product effect incomplete [Unknown]
  - Anger [Unknown]
  - Tremor [Unknown]
  - Eyelid function disorder [Unknown]
  - Depressed mood [Unknown]
  - Crying [Unknown]
  - Disorganised speech [Unknown]
  - Adverse drug reaction [Unknown]

NARRATIVE: CASE EVENT DATE: 20230509
